FAERS Safety Report 15502345 (Version 1)
Quarter: 2018Q4

REPORT INFORMATION
  Report Type: Report from Study
  Country: None (occurrence: NO)
  Receive Date: 20181015
  Receipt Date: 20181015
  Transmission Date: 20190205
  Serious: Yes (Hospitalization, Other)
  Sender: FDA-Public Use
  Company Number: NO-ABBVIE-18S-122-2514254-00

PATIENT
  Age: 71 Year
  Sex: Male

DRUGS (3)
  1. DUODOPA [Suspect]
     Active Substance: CARBIDOPA\LEVODOPA
     Route: 050
     Dates: start: 20181003
  2. DUODOPA [Suspect]
     Active Substance: CARBIDOPA\LEVODOPA
     Indication: PRODUCT USED FOR UNKNOWN INDICATION
     Dosage: TEST PHASE
     Route: 050
     Dates: start: 20180717, end: 20180718
  3. ORFIRIL [Concomitant]
     Active Substance: VALPROATE SODIUM
     Indication: EPILEPSY

REACTIONS (10)
  - Stoma site ulcer [Unknown]
  - Pain [Recovering/Resolving]
  - Stoma site induration [Unknown]
  - Ill-defined disorder [Unknown]
  - Stoma site discharge [Unknown]
  - Gastric infection [Recovering/Resolving]
  - Atrial fibrillation [Unknown]
  - Stoma site pain [Recovering/Resolving]
  - Dyspnoea [Unknown]
  - Drug effect decreased [Unknown]

NARRATIVE: CASE EVENT DATE: 2018
